FAERS Safety Report 21110440 (Version 1)
Quarter: 2022Q3

REPORT INFORMATION
  Report Type: Spontaneous
  Country: RU (occurrence: RU)
  Receive Date: 20220721
  Receipt Date: 20220721
  Transmission Date: 20221027
  Serious: Yes (Other)
  Sender: FDA-Public Use
  Company Number: RU-NOVARTISPH-NVSC2022RU163204

PATIENT
  Age: 15 Year
  Sex: Male
  Weight: 43 kg

DRUGS (3)
  1. METHOTREXATE [Suspect]
     Active Substance: METHOTREXATE
     Indication: Product used for unknown indication
     Dosage: 10 MG
     Route: 058
     Dates: start: 20220701, end: 20220704
  2. FOLIC ACID [Concomitant]
     Active Substance: FOLIC ACID
     Indication: Product used for unknown indication
     Dosage: UNK
     Route: 048
     Dates: start: 20220628
  3. URSODEZ [Concomitant]
     Indication: Product used for unknown indication
     Dosage: UNK
     Route: 048
     Dates: start: 20220704, end: 20220712

REACTIONS (1)
  - Drug-induced liver injury [Recovered/Resolved with Sequelae]

NARRATIVE: CASE EVENT DATE: 20220704
